FAERS Safety Report 6091406-6 (Version None)
Quarter: 2009Q1

REPORT INFORMATION
  Report Type: 
  Country: None (occurrence: None)
  Receive Date: 20090225
  Receipt Date: 20090109
  Transmission Date: 20090719
  Serious: No
  Sender: FDA-Public Use
  Company Number: A0762852A

PATIENT
  Age: 57 Year
  Sex: Female

DRUGS (8)
  1. VERAMYST [Suspect]
     Dosage: 1SPR TWICE PER DAY
     Route: 045
     Dates: start: 20081201, end: 20081224
  2. AMOXICILLIN [Concomitant]
  3. SIMVASTATIN [Concomitant]
  4. DIOVAN [Concomitant]
  5. PLAVIX [Concomitant]
  6. RANITIDINE [Concomitant]
  7. LEVOTHYROXINE SODIUM [Concomitant]
  8. ASPIRIN [Concomitant]

REACTIONS (2)
  - MYDRIASIS [None]
  - PHOTOSENSITIVITY REACTION [None]
